FAERS Safety Report 12782619 (Version 1)
Quarter: 2016Q3

REPORT INFORMATION
  Report Type: Spontaneous
  Country: US (occurrence: US)
  Receive Date: 20160923
  Receipt Date: 20160923
  Transmission Date: 20161109
  Serious: Yes (Hospitalization)
  Sender: FDA-Public Use
  Company Number: None

PATIENT
  Age: 41 Year
  Sex: Female
  Weight: 91.2 kg

DRUGS (2)
  1. PRAZOSIN [Suspect]
     Active Substance: PRAZOSIN
     Indication: POST-TRAUMATIC STRESS DISORDER
     Route: 048
     Dates: start: 20101119, end: 20101126
  2. PRAZOSIN [Suspect]
     Active Substance: PRAZOSIN
     Indication: ANXIETY
     Route: 048
     Dates: start: 20101119, end: 20101126

REACTIONS (2)
  - Delirium [None]
  - Hyperglycaemia [None]

NARRATIVE: CASE EVENT DATE: 20101126
